FAERS Safety Report 8577482-7 (Version None)
Quarter: 2012Q3

REPORT INFORMATION
  Report Type: 
  Country: None (occurrence: None)
  Receive Date: 20120807
  Receipt Date: 20120801
  Transmission Date: 20120928
  Serious: Yes (Hospitalization)
  Sender: FDA-Public Use
  Company Number: BE-PFIZER INC-2012188027

PATIENT
  Age: 56 Year
  Sex: Female
  Weight: 83 kg

DRUGS (7)
  1. ESTRADIOL [Concomitant]
     Indication: LUTEINISING HORMONE DEFICIENCY
     Dosage: UNK
     Dates: start: 19790101
  2. HYDROCORTISONE [Concomitant]
     Indication: BLOOD THYROID STIMULATING HORMONE DECREASED
     Dosage: UNK
     Dates: start: 19880115
  3. ESTRADIOL [Concomitant]
     Indication: FOLLICLE-STIMULATING HORMONE DEFICIENCY
  4. GENOTROPIN [Suspect]
     Indication: HYPOPITUITARISM
     Dosage: 0.8 MG/DAY, 7 INJECTIONS/WEEK
     Route: 058
     Dates: start: 20040308
  5. NORGESTREL [Concomitant]
     Indication: FOLLICLE-STIMULATING HORMONE DEFICIENCY
  6. NORGESTREL [Concomitant]
     Indication: LUTEINISING HORMONE DEFICIENCY
     Dosage: UNK
     Dates: start: 19790101
  7. LEVOTHYROXINE [Concomitant]
     Indication: BLOOD THYROID STIMULATING HORMONE DECREASED
     Dosage: UNK
     Dates: start: 19600101

REACTIONS (1)
  - WOUND COMPLICATION [None]
